FAERS Safety Report 25602607 (Version 2)
Quarter: 2025Q3

REPORT INFORMATION
  Report Type: Report from Study
  Country: BR (occurrence: BR)
  Receive Date: 20250724
  Receipt Date: 20250801
  Transmission Date: 20251021
  Serious: Yes (Other)
  Sender: TAKEDA
  Company Number: BR-TAKEDA-2024TUS123003

PATIENT
  Age: 39 Year
  Sex: Female

DRUGS (4)
  1. VEDOLIZUMAB [Suspect]
     Active Substance: VEDOLIZUMAB
     Indication: Colitis ulcerative
  2. VEDOLIZUMAB [Suspect]
     Active Substance: VEDOLIZUMAB
     Dosage: 300 MILLIGRAM, Q4WEEKS
  3. VEDOLIZUMAB [Suspect]
     Active Substance: VEDOLIZUMAB
  4. MESALAMINE [Suspect]
     Active Substance: MESALAMINE
     Indication: Product used for unknown indication

REACTIONS (18)
  - Uveitis [Unknown]
  - Pneumonia [Unknown]
  - Product availability issue [Unknown]
  - Adverse food reaction [Unknown]
  - Pain in extremity [Unknown]
  - Inappropriate schedule of product administration [Not Recovered/Not Resolved]
  - Groin pain [Unknown]
  - Diarrhoea [Unknown]
  - Weight increased [Unknown]
  - Vitamin D deficiency [Unknown]
  - Hepatic steatosis [Unknown]
  - Anxiety [Unknown]
  - Intervertebral disc protrusion [Unknown]
  - Movement disorder [Unknown]
  - Abdominal pain [Unknown]
  - Dyspnoea [Unknown]
  - Headache [Unknown]
  - Back pain [Unknown]

NARRATIVE: CASE EVENT DATE: 20250701
